FAERS Safety Report 4613623-1 (Version None)
Quarter: 2005Q1

REPORT INFORMATION
  Report Type: 
  Country: None (occurrence: None)
  Receive Date: 20050318
  Receipt Date: 20050318
  Transmission Date: 20050727
  Serious: Yes (Hospitalization)
  Sender: FDA-Public Use
  Company Number: None

PATIENT
  Age: 39 Year
  Sex: Male
  Weight: 111 kg

DRUGS (9)
  1. GATIFLOXACIN [Suspect]
     Indication: UPPER RESPIRATORY TRACT INFECTION
     Dosage: 400 MG PO DAILY
     Route: 048
     Dates: start: 20041109, end: 20041113
  2. ALBUTEROL [Concomitant]
  3. ALENDRONATE SODIUM [Concomitant]
  4. ITRACONAZOLE [Concomitant]
  5. SPIRONOLACTONE/HYDROCHLOROTHIAZIDE [Concomitant]
  6. MONTELUKAST [Concomitant]
  7. IPRATROPIUM BROMIDE [Concomitant]
  8. PREDNISONE [Concomitant]
  9. PSEUDOEPHEDRINE HCL [Concomitant]

REACTIONS (2)
  - DEHYDRATION [None]
  - DIARRHOEA [None]
